FAERS Safety Report 7844665-0 (Version None)
Quarter: 2011Q4

REPORT INFORMATION
  Report Type: 
  Country: None (occurrence: None)
  Receive Date: 20111025
  Receipt Date: 20111017
  Transmission Date: 20120403
  Serious: Yes (Other)
  Sender: FDA-Public Use
  Company Number: US-BAYER-2011-099438

PATIENT
  Age: 15 Year
  Sex: Female
  Weight: 58.4 kg

DRUGS (3)
  1. METAB O LITE [ARGININE,ORNITHINE,PHENYLALANINE] [Suspect]
  2. DROSPIRENONE AND ETHINYL ESTRADIOL [Suspect]
     Dosage: UNK
  3. HCG DETOXIFICATION SUPPLEMENT [Concomitant]

REACTIONS (12)
  - HAEMATURIA [None]
  - CHOLESTASIS [None]
  - COAGULOPATHY [None]
  - PYREXIA [None]
  - OEDEMA PERIPHERAL [None]
  - HAEMOLYTIC ANAEMIA [None]
  - RENAL IMPAIRMENT [None]
  - FLANK PAIN [None]
  - PALPITATIONS [None]
  - HEPATO-LENTICULAR DEGENERATION [None]
  - JAUNDICE [None]
  - FATIGUE [None]
